FAERS Safety Report 5633477-4 (Version None)
Quarter: 2008Q1

REPORT INFORMATION
  Report Type: 
  Country: None (occurrence: None)
  Receive Date: 20080221
  Receipt Date: 20080209
  Transmission Date: 20080703
  Serious: Yes (Other)
  Sender: FDA-Public Use
  Company Number: US-PFIZER INC-2007099302

PATIENT
  Sex: Male
  Weight: 79.545 kg

DRUGS (2)
  1. CHANTIX [Suspect]
     Indication: SMOKING CESSATION THERAPY
     Route: 048
     Dates: start: 20070731, end: 20070828
  2. DOXYCYCLINE [Concomitant]

REACTIONS (8)
  - ABDOMINAL DISCOMFORT [None]
  - ASTHENIA [None]
  - CEREBROVASCULAR ACCIDENT [None]
  - DIZZINESS [None]
  - HYPOAESTHESIA FACIAL [None]
  - NEUROPATHY PERIPHERAL [None]
  - SWELLING [None]
  - TYPE 2 DIABETES MELLITUS [None]
